FAERS Safety Report 4885737-2 (Version None)
Quarter: 2006Q1

REPORT INFORMATION
  Report Type: 
  Country: None (occurrence: None)
  Receive Date: 20060117
  Receipt Date: 20060103
  Transmission Date: 20060701
  Serious: Yes (Other)
  Sender: FDA-Public Use
  Company Number: 2006005685

PATIENT
  Sex: Female

DRUGS (1)
  1. SERTRALINE [Suspect]
     Indication: DEPRESSION
     Dosage: (80 MG), ORAL
     Route: 048
     Dates: start: 20051120, end: 20051122

REACTIONS (2)
  - ARTHRALGIA [None]
  - JOINT SWELLING [None]
